FAERS Safety Report 14163496 (Version 1)
Quarter: 2017Q4

REPORT INFORMATION
  Report Type: Spontaneous
  Country: FR (occurrence: FR)
  Receive Date: 20171106
  Receipt Date: 20171106
  Transmission Date: 20180321
  Serious: Yes (Hospitalization, Other)
  Sender: FDA-Public Use
  Company Number: FR-ELI_LILLY_AND_COMPANY-FR201710009959

PATIENT
  Age: 42 Year
  Sex: Male

DRUGS (12)
  1. ZYPREXA [Suspect]
     Active Substance: OLANZAPINE
     Indication: PSYCHOTIC DISORDER
     Dosage: 30 MG, DAILY
     Route: 048
     Dates: start: 20160210
  2. INEXIUM                            /01479302/ [Suspect]
     Active Substance: ESOMEPRAZOLE MAGNESIUM
     Indication: PROPHYLAXIS
     Dosage: 40 MG, DAILY
     Route: 048
     Dates: start: 20160226
  3. LOXAPAC                            /00401801/ [Suspect]
     Active Substance: LOXAPINE SUCCINATE
     Dosage: 500 GTT, DAILY
     Dates: start: 20170715
  4. DUPHALAC [Concomitant]
     Active Substance: LACTULOSE
     Indication: PRODUCT USED FOR UNKNOWN INDICATION
     Dosage: UNK, PRN
     Route: 065
  5. LEPTICUR [Suspect]
     Active Substance: TROPATEPINE HYDROCHLORIDE
     Indication: PSYCHOTIC DISORDER
     Dosage: 10 MG, TID
     Route: 048
     Dates: start: 20131114
  6. ARTISIAL [Suspect]
     Active Substance: CALCIUM CHLORIDE\MAGNESIUM CHLORIDE\POTASSIUM CHLORIDE\POTASSIUM PHOSPHATE, DIBASIC\POTASSIUM PHOSPHATE, MONOBASIC\SODIUM CHLORIDE
     Indication: APTYALISM
     Dosage: 3 DF, DAILY
     Route: 048
     Dates: start: 20140521
  7. LOXAPAC                            /00401801/ [Suspect]
     Active Substance: LOXAPINE SUCCINATE
     Indication: PSYCHOTIC DISORDER
     Dosage: 575 GTT, UNK
     Route: 048
     Dates: start: 20160429
  8. VALIUM [Suspect]
     Active Substance: DIAZEPAM
     Dosage: 50 GTT, DAILY
     Dates: start: 20170715
  9. IMOVANE [Suspect]
     Active Substance: ZOPICLONE
     Indication: INSOMNIA
     Dosage: 7.5 MG, PRN
     Route: 048
     Dates: start: 20151030
  10. VALIUM [Suspect]
     Active Substance: DIAZEPAM
     Indication: PSYCHOTIC DISORDER
     Dosage: 70 GTT, UNK
     Route: 048
     Dates: start: 20160429
  11. MICROLAX                           /00285401/ [Concomitant]
     Indication: PRODUCT USED FOR UNKNOWN INDICATION
     Dosage: UNK, PRN
     Route: 065
  12. SULFARLEM S [Suspect]
     Active Substance: ANETHOLTRITHION
     Indication: APTYALISM
     Dosage: 25 MG, PRN
     Route: 048
     Dates: start: 20150622

REACTIONS (6)
  - Sepsis [Unknown]
  - Endocarditis [Unknown]
  - Ischaemic stroke [Recovering/Resolving]
  - Pneumonia aspiration [Unknown]
  - Poverty of speech [Unknown]
  - Somnolence [Unknown]

NARRATIVE: CASE EVENT DATE: 20170704
